FAERS Safety Report 21407078 (Version 1)
Quarter: 2022Q4

REPORT INFORMATION
  Report Type: Spontaneous
  Country: US (occurrence: None)
  Receive Date: 20221003
  Receipt Date: 20221003
  Transmission Date: 20230112
  Serious: No
  Sender: FDA-Public Use
  Company Number: None

PATIENT
  Age: 49 Year
  Sex: Female
  Weight: 85.5 kg

DRUGS (4)
  1. DEXTROAMPHET SACCHARAT, AMPHET ASPARTATE, DEXTROAMPHET SULFATE AND AMP [Suspect]
     Active Substance: AMPHETAMINE ASPARTATE\AMPHETAMINE SULFATE\DEXTROAMPHETAMINE SACCHARATE\DEXTROAMPHETAMINE SULFATE
     Indication: Attention deficit hyperactivity disorder
     Dosage: FREQUENCY : TWICE A DAY;?
     Route: 048
     Dates: start: 20220805
  2. OLMESARTAN [Concomitant]
     Active Substance: OLMESARTAN
  3. SPIRONOLACTONE [Concomitant]
     Active Substance: SPIRONOLACTONE
  4. METHOCARBAMOL [Concomitant]
     Active Substance: METHOCARBAMOL

REACTIONS (6)
  - Headache [None]
  - Hunger [None]
  - Drug ineffective [None]
  - Irritability [None]
  - Disturbance in attention [None]
  - Product quality issue [None]

NARRATIVE: CASE EVENT DATE: 20220805
